FAERS Safety Report 24962701 (Version 3)
Quarter: 2025Q2

REPORT INFORMATION
  Report Type: Report from Study
  Country: ES (occurrence: ES)
  Receive Date: 20250212
  Receipt Date: 20250508
  Transmission Date: 20250717
  Serious: Yes (Other)
  Sender: TAKEDA
  Company Number: ES-TAKEDA-2025TUS015254

PATIENT
  Age: 7 Year
  Sex: Female

DRUGS (12)
  1. TEDUGLUTIDE [Suspect]
     Active Substance: TEDUGLUTIDE
     Indication: Short-bowel syndrome
     Dosage: 0.29 MILLIGRAM, QD
     Dates: start: 20190311, end: 20200601
  2. TEDUGLUTIDE [Suspect]
     Active Substance: TEDUGLUTIDE
     Dosage: 0.4 MILLIGRAM, QD
     Dates: start: 20200601, end: 20220128
  3. TEDUGLUTIDE [Suspect]
     Active Substance: TEDUGLUTIDE
     Dosage: 0.5 MILLIGRAM, QD
     Dates: start: 20220128, end: 20220621
  4. TEDUGLUTIDE [Suspect]
     Active Substance: TEDUGLUTIDE
     Dosage: 0.6 MILLIGRAM, QD
     Dates: start: 20220625, end: 20230818
  5. TEDUGLUTIDE [Suspect]
     Active Substance: TEDUGLUTIDE
     Dosage: 0.7 MILLIGRAM, QD
     Dates: start: 20230818
  6. RIFAXIMIN [Concomitant]
     Active Substance: RIFAXIMIN
     Indication: Gastrointestinal inflammation
  7. URSODIOL [Concomitant]
     Active Substance: URSODIOL
     Indication: Cholestasis
     Dosage: 62.5 MILLIGRAM, BID
     Dates: start: 20200601, end: 20240705
  8. URSODIOL [Concomitant]
     Active Substance: URSODIOL
     Dosage: 150 MILLIGRAM, BID
     Dates: start: 20240705
  9. FLAGYL [Concomitant]
     Active Substance: METRONIDAZOLE\METRONIDAZOLE HYDROCHLORIDE
     Indication: Gastrointestinal inflammation
     Dosage: 100 MILLIGRAM, BID
     Dates: start: 20230818, end: 20241211
  10. FLAGYL [Concomitant]
     Active Substance: METRONIDAZOLE\METRONIDAZOLE HYDROCHLORIDE
  11. Hibor [Concomitant]
     Indication: Thrombosis prophylaxis
     Dosage: 950 INTERNATIONAL UNIT, QD
     Dates: start: 20191118, end: 202410
  12. Hibor [Concomitant]
     Dosage: 1125 INTERNATIONAL UNIT, QD
     Dates: start: 20241211

REACTIONS (2)
  - Enterocutaneous fistula [Not Recovered/Not Resolved]
  - Granuloma [Not Recovered/Not Resolved]

NARRATIVE: CASE EVENT DATE: 20240101
